FAERS Safety Report 5389474-X (Version None)
Quarter: 2007Q3

REPORT INFORMATION
  Report Type: 
  Country: None (occurrence: None)
  Receive Date: 20070717
  Receipt Date: 20070711
  Transmission Date: 20080115
  Serious: Yes (Hospitalization)
  Sender: FDA-Public Use
  Company Number: FR-ELI_LILLY_AND_COMPANY-FR200707002816

PATIENT
  Age: 73 Year
  Sex: Male

DRUGS (6)
  1. ALIMTA [Suspect]
     Indication: NON-SMALL CELL LUNG CANCER
     Dosage: 500 MG/M2, OTHER
     Route: 042
     Dates: start: 20061124
  2. LEVOFLOXACIN [Concomitant]
     Dosage: UNK, UNKNOWN
     Route: 065
     Dates: start: 20061130, end: 20061203
  3. NAVELBINE [Concomitant]
     Indication: NON-SMALL CELL LUNG CANCER
     Dosage: 60 MG, OTHER
     Route: 042
     Dates: start: 20060711, end: 20060915
  4. CARBOPLATIN [Concomitant]
     Indication: NON-SMALL CELL LUNG CANCER
     Dosage: 430 MG, OTHER
     Route: 042
     Dates: start: 20060711, end: 20060908
  5. SPECIAFOLDINE [Concomitant]
     Indication: VITAMIN SUPPLEMENTATION
     Dosage: 1 D/F, DAILY (1/D)
     Route: 048
  6. MONOTILDIEM [Concomitant]
     Dosage: UNK, UNKNOWN
     Route: 065

REACTIONS (6)
  - LEUKOPENIA [None]
  - PURPURA [None]
  - PYREXIA [None]
  - RASH PRURITIC [None]
  - STOMATITIS [None]
  - THROMBOCYTOPENIA [None]
